FAERS Safety Report 17425893 (Version 3)
Quarter: 2020Q2

REPORT INFORMATION
  Report Type: Report from Study
  Country: EG (occurrence: EG)
  Receive Date: 20200217
  Receipt Date: 20200413
  Transmission Date: 20200713
  Serious: Yes (Hospitalization, Disabling, Other)
  Sender: FDA-Public Use
  Company Number: EG-009507513-1809EGY010674

PATIENT
  Age: 57 Year
  Sex: Male

DRUGS (5)
  1. PEMBROLIZUMAB. [Suspect]
     Active Substance: PEMBROLIZUMAB
     Indication: NON-SMALL CELL LUNG CANCER
     Dosage: 200 MILLIGRAM, Q3W, STRENGTH: 100 MILLIGRAM
     Route: 042
     Dates: start: 20180519
  2. CALCIUM (UNSPECIFIED) [Concomitant]
     Active Substance: CALCIUM
     Dosage: UNK
  3. EPREX [Concomitant]
     Active Substance: ERYTHROPOIETIN
     Dosage: UNK
  4. PEMBROLIZUMAB. [Suspect]
     Active Substance: PEMBROLIZUMAB
     Indication: BLADDER CANCER
     Dosage: 200 MG, Q3W; STRENGTH: 100 MG
     Route: 042
     Dates: start: 20180819, end: 20181107
  5. PEMBROLIZUMAB. [Suspect]
     Active Substance: PEMBROLIZUMAB
     Dosage: 200 MILLIGRAM, Q3W ,STRENGTH: 100 MILLIGRAM,
     Route: 042
     Dates: start: 20191109

REACTIONS (39)
  - Surgery [Recovering/Resolving]
  - Platelet count decreased [Not Recovered/Not Resolved]
  - Iron deficiency anaemia [Unknown]
  - Vomiting [Unknown]
  - Procedural complication [Recovered/Resolved]
  - Pain in extremity [Recovering/Resolving]
  - Calcium deficiency [Not Recovered/Not Resolved]
  - Injection site haemorrhage [Not Recovered/Not Resolved]
  - Inappropriate schedule of product administration [Unknown]
  - Wrong technique in product usage process [Unknown]
  - Renal failure [Not Recovered/Not Resolved]
  - Renal impairment [Unknown]
  - Haemorrhage [Recovering/Resolving]
  - Hypotension [Not Recovered/Not Resolved]
  - Peripheral swelling [Recovering/Resolving]
  - Inappropriate schedule of product administration [Unknown]
  - Malignant neoplasm progression [Not Recovered/Not Resolved]
  - Headache [Unknown]
  - Postoperative wound infection [Recovered/Resolved]
  - Coma [Recovered/Resolved]
  - Surgery [Recovering/Resolving]
  - Gait inability [Recovering/Resolving]
  - Inappropriate schedule of product administration [Unknown]
  - Postoperative wound complication [Not Recovered/Not Resolved]
  - Hypertension [Not Recovered/Not Resolved]
  - Therapeutic product effect incomplete [Unknown]
  - Injection site pain [Not Recovered/Not Resolved]
  - Dizziness [Unknown]
  - Nephrectomy [Recovering/Resolving]
  - C-reactive protein increased [Recovered/Resolved]
  - Thrombosis [Not Recovered/Not Resolved]
  - Renal haemorrhage [Recovered/Resolved]
  - Impaired healing [Not Recovered/Not Resolved]
  - Nephritis [Unknown]
  - Muscle spasms [Not Recovered/Not Resolved]
  - Hiccups [Unknown]
  - Malignant neoplasm progression [Not Recovered/Not Resolved]
  - Wound infection [Recovering/Resolving]
  - Mental disorder [Unknown]

NARRATIVE: CASE EVENT DATE: 20180901
